FAERS Safety Report 25999567 (Version 1)
Quarter: 2025Q4

REPORT INFORMATION
  Report Type: Spontaneous
  Country: EU (occurrence: EU)
  Receive Date: 20251105
  Receipt Date: 20251105
  Transmission Date: 20260118
  Serious: Yes (Hospitalization)
  Sender: REGENERON
  Company Number: None

PATIENT
  Age: 74 Year
  Sex: Female

DRUGS (3)
  1. EYLEA HD [Suspect]
     Active Substance: AFLIBERCEPT
     Indication: Neovascular age-related macular degeneration
     Dosage: 8 MG, ONCE, SOLUTION FOR INJECTION, 114.3 MG/ML
     Route: 031
     Dates: start: 20250610, end: 20250610
  2. EYLEA HD [Suspect]
     Active Substance: AFLIBERCEPT
     Dosage: 8 MG, ONCE, SOLUTION FOR INJECTION, 114.3 MG/ML
     Route: 031
     Dates: start: 20250805, end: 20250805
  3. EYLEA HD [Suspect]
     Active Substance: AFLIBERCEPT
     Dosage: 8 MG, ONCE, SOLUTION FOR INJECTION, 114.3 MG/ML
     Route: 031
     Dates: start: 20250930, end: 20250930

REACTIONS (3)
  - Vitrectomy [Recovering/Resolving]
  - Iritis [Recovering/Resolving]
  - Vitritis [Recovering/Resolving]

NARRATIVE: CASE EVENT DATE: 20251001
